FAERS Safety Report 24259215 (Version 1)
Quarter: 2024Q3

REPORT INFORMATION
  Report Type: Spontaneous
  Country: GB (occurrence: GB)
  Receive Date: 20240828
  Receipt Date: 20240828
  Transmission Date: 20241017
  Serious: Yes (Other)
  Sender: BAYER
  Company Number: None

PATIENT
  Age: 31 Year
  Sex: Male
  Weight: 86 kg

DRUGS (1)
  1. CIPROFLOXACIN [Suspect]
     Active Substance: CIPROFLOXACIN
     Indication: Crohn^s disease
     Dosage: 500 MG, BID
     Route: 048
     Dates: start: 20240823, end: 20240824

REACTIONS (10)
  - Tendon pain [Not Recovered/Not Resolved]
  - Joint swelling [Not Recovered/Not Resolved]
  - Burning sensation [Not Recovered/Not Resolved]
  - Anxiety [Recovering/Resolving]
  - Panic attack [Recovering/Resolving]
  - Myalgia [Not Recovered/Not Resolved]
  - Muscle spasms [Not Recovered/Not Resolved]
  - Nausea [Recovered/Resolved]
  - Dry mouth [Not Recovered/Not Resolved]
  - Arthralgia [Not Recovered/Not Resolved]
